FAERS Safety Report 16379116 (Version 1)
Quarter: 2019Q2

REPORT INFORMATION
  Report Type: Spontaneous
  Country: CA (occurrence: CA)
  Receive Date: 20190531
  Receipt Date: 20190531
  Transmission Date: 20190711
  Serious: Yes (Other)
  Sender: FDA-Public Use
  Company Number: CA-TEVA-2019-CA-1057871

PATIENT
  Age: 71 Year
  Sex: Female
  Weight: 67.19 kg

DRUGS (1)
  1. VALSARTAN. [Suspect]
     Active Substance: VALSARTAN
     Indication: SWELLING
     Dosage: 1 EVERY 1 DAY
     Route: 048

REACTIONS (2)
  - Uterine operation [Recovered/Resolved]
  - Breast cancer [Recovered/Resolved]
